FAERS Safety Report 20659843 (Version 1)
Quarter: 2022Q1

REPORT INFORMATION
  Report Type: Spontaneous
  Country: SK (occurrence: None)
  Receive Date: 20220331
  Receipt Date: 20220331
  Transmission Date: 20220423
  Serious: Yes (Death, Hospitalization)
  Sender: FDA-Public Use
  Company Number: SK-Merck Healthcare KGaA-9309398

PATIENT
  Age: 86 Year
  Sex: Male

DRUGS (1)
  1. BAVENCIO [Suspect]
     Active Substance: AVELUMAB
     Indication: Skin cancer
     Route: 042
     Dates: start: 20220202, end: 20220302

REACTIONS (3)
  - Syncope [Unknown]
  - Haemorrhage [Unknown]
  - Disease progression [Fatal]

NARRATIVE: CASE EVENT DATE: 20220317
